FAERS Safety Report 20764215 (Version 1)
Quarter: 2022Q2

REPORT INFORMATION
  Report Type: Spontaneous
  Country: US (occurrence: US)
  Receive Date: 20220428
  Receipt Date: 20220428
  Transmission Date: 20220721
  Serious: No
  Sender: FDA-Public Use
  Company Number: US-MYLANLABS-2022M1029944

PATIENT
  Age: 59 Year
  Sex: Female
  Weight: 72.57 kg

DRUGS (1)
  1. GLATIRAMER ACETATE [Suspect]
     Active Substance: GLATIRAMER ACETATE
     Indication: Multiple sclerosis
     Dosage: 40 MILLIGRAM
     Route: 058
     Dates: start: 20220416

REACTIONS (3)
  - Injection site erythema [Recovering/Resolving]
  - Injection site swelling [Recovering/Resolving]
  - Injection site pruritus [Recovered/Resolved]

NARRATIVE: CASE EVENT DATE: 20220416
